FAERS Safety Report 14460572 (Version 2)
Quarter: 2018Q1

REPORT INFORMATION
  Report Type: Report from Study
  Country: TW (occurrence: TW)
  Receive Date: 20180130
  Receipt Date: 20180130
  Transmission Date: 20180509
  Serious: Yes (Death, Life-Threatening, Hospitalization, Other)
  Sender: FDA-Public Use
  Company Number: TW-BAYER-2018-001141

PATIENT
  Age: 76 Year
  Sex: Female
  Weight: 65.2 kg

DRUGS (9)
  1. ADEMPAS [Suspect]
     Active Substance: RIOCIGUAT
     Indication: PULMONARY HYPERTENSION
     Dosage: UNK
  2. METOCLOPRAMIDE HCL [Concomitant]
     Active Substance: METOCLOPRAMIDE HYDROCHLORIDE
     Dosage: 5 MG, TID
     Route: 048
  3. FUROSEMIDE. [Concomitant]
     Active Substance: FUROSEMIDE
     Dosage: 20 MG, Q12H
     Dates: start: 20180108
  4. PROPRANOLOL [Concomitant]
     Active Substance: PROPRANOLOL HYDROCHLORIDE
     Dosage: 10 MG, BID
  5. ADEMPAS [Suspect]
     Active Substance: RIOCIGUAT
     Indication: PULMONARY HYPERTENSION
     Dosage: 2.5 MG, TID
     Route: 048
     Dates: end: 201712
  6. PROMETIN [Concomitant]
     Dosage: 5 MG, TID
  7. TRACLEER [Suspect]
     Active Substance: BOSENTAN
     Dosage: UNK
     Dates: start: 20180106
  8. ADEMPAS [Suspect]
     Active Substance: RIOCIGUAT
     Indication: PULMONARY HYPERTENSION
     Dosage: UNK
  9. SENNOSIDE [Concomitant]
     Active Substance: SENNOSIDES
     Dosage: UNK

REACTIONS (17)
  - Cellulitis [Not Recovered/Not Resolved]
  - Erythema [None]
  - Septic shock [Not Recovered/Not Resolved]
  - Hypotension [None]
  - Dyspnoea [None]
  - Asthenia [Not Recovered/Not Resolved]
  - Blood pressure decreased [None]
  - Torsade de pointes [None]
  - Hypotension [Not Recovered/Not Resolved]
  - Weight increased [None]
  - Death [Fatal]
  - Micturition frequency decreased [Not Recovered/Not Resolved]
  - Urinary tract infection [Not Recovered/Not Resolved]
  - Pneumonia [None]
  - Oedema peripheral [None]
  - Decreased appetite [Not Recovered/Not Resolved]
  - Wheezing [None]

NARRATIVE: CASE EVENT DATE: 20171230
